FAERS Safety Report 9729425 (Version 1)
Quarter: 2013Q4

REPORT INFORMATION
  Report Type: Spontaneous
  Country: US (occurrence: US)
  Receive Date: 20131204
  Receipt Date: 20131204
  Transmission Date: 20140711
  Serious: No
  Sender: FDA-Public Use
  Company Number: US-GILEAD-2009-0021242

PATIENT
  Sex: Female
  Weight: 64.41 kg

DRUGS (12)
  1. LETAIRIS [Suspect]
     Indication: PULMONARY ARTERIAL HYPERTENSION
     Route: 048
     Dates: start: 20081008
  2. TOPROL XL [Concomitant]
  3. LIPITOR [Concomitant]
  4. TENEX [Concomitant]
  5. CARDURA [Concomitant]
  6. POTASSIUM [Concomitant]
  7. EVISTA [Concomitant]
  8. JANUMET [Concomitant]
  9. COMPAZINE [Concomitant]
  10. SYNTHROID [Concomitant]
  11. BENTYL [Concomitant]
  12. BENADRYL [Concomitant]

REACTIONS (1)
  - Dyspnoea [Unknown]
